FAERS Safety Report 4994089-9 (Version None)
Quarter: 2006Q2

REPORT INFORMATION
  Report Type: 
  Country: None (occurrence: None)
  Receive Date: 20060505
  Receipt Date: 20060322
  Transmission Date: 20061013
  Serious: Yes (Disabling)
  Sender: FDA-Public Use
  Company Number: GB-ROCHE-441953

PATIENT
  Age: 25 Year
  Sex: Female
  Weight: 61 kg

DRUGS (4)
  1. ROACCUTANE [Suspect]
     Indication: ACNE
     Route: 048
     Dates: start: 20051201, end: 20060111
  2. ROACCUTANE [Suspect]
     Route: 048
     Dates: start: 20051019, end: 20051130
  3. ROACCUTANE [Suspect]
     Route: 048
     Dates: start: 20060112, end: 20060208
  4. ORAL CONTRACEPTIVE PILL [Concomitant]
     Indication: DRUG USE FOR UNKNOWN INDICATION
     Route: 048

REACTIONS (1)
  - INTERVERTEBRAL DISC PROTRUSION [None]
